FAERS Safety Report 6744132-1 (Version None)
Quarter: 2010Q2

REPORT INFORMATION
  Report Type: 
  Country: None (occurrence: None)
  Receive Date: 20100527
  Receipt Date: 20100519
  Transmission Date: 20101027
  Serious: Yes (Death, Hospitalization)
  Sender: FDA-Public Use
  Company Number: B0653658A

PATIENT
  Sex: Female

DRUGS (4)
  1. ARIXTRA [Suspect]
     Indication: DRUG USE FOR UNKNOWN INDICATION
     Dosage: 2.5MG PER DAY
     Route: 058
     Dates: start: 20100426, end: 20100427
  2. DILTIAZEM [Concomitant]
     Route: 065
  3. FORLAX [Concomitant]
     Route: 065
  4. DOLIPRANE [Concomitant]
     Route: 065

REACTIONS (8)
  - ACTIVATED PARTIAL THROMBOPLASTIN TIME PROLONGED [None]
  - BLOOD POTASSIUM INCREASED [None]
  - FAECAL VOMITING [None]
  - HAEMOGLOBIN DECREASED [None]
  - MELAENA [None]
  - PALLOR [None]
  - RECTAL HAEMORRHAGE [None]
  - SHOCK [None]
